FAERS Safety Report 4689692-X (Version None)
Quarter: 2005Q2

REPORT INFORMATION
  Report Type: 
  Country: None (occurrence: None)
  Receive Date: 20050608
  Receipt Date: 20050413
  Transmission Date: 20051028
  Serious: Yes (Life-Threatening)
  Sender: FDA-Public Use
  Company Number: 2005-01251

PATIENT
  Age: 60 Year
  Sex: Female
  Weight: 53.5 kg

DRUGS (1)
  1. INFED [Suspect]
     Indication: IRON DEFICIENCY ANAEMIA
     Dosage: 8.3 MG (2 ML), SINGLE, INTRAVENOUS
     Route: 042
     Dates: start: 20050412, end: 20050412

REACTIONS (4)
  - BLOOD PRESSURE INCREASED [None]
  - HYPERHIDROSIS [None]
  - TACHYCARDIA [None]
  - WHEEZING [None]
